FAERS Safety Report 6460291-2 (Version None)
Quarter: 2009Q4

REPORT INFORMATION
  Report Type: 
  Country: None (occurrence: None)
  Receive Date: 20091130
  Receipt Date: 20091119
  Transmission Date: 20100525
  Serious: Yes (Other)
  Sender: FDA-Public Use
  Company Number: PHHY2009CA51156

PATIENT
  Sex: Female

DRUGS (2)
  1. SANDOSTATIN LAR [Suspect]
     Indication: NEUROENDOCRINE TUMOUR
     Dosage: 30 MG, UNK
     Route: 030
     Dates: start: 20091111
  2. SANDOSTATIN [Suspect]
     Dosage: UNK
     Route: 058
     Dates: start: 20091001, end: 20091123

REACTIONS (2)
  - LIVER OPERATION [None]
  - SMALL INTESTINAL RESECTION [None]
